FAERS Safety Report 12104861 (Version 1)
Quarter: 2016Q1

REPORT INFORMATION
  Report Type: Spontaneous
  Country: US (occurrence: US)
  Receive Date: 20160223
  Receipt Date: 20160223
  Transmission Date: 20160526
  Serious: No
  Sender: FDA-Public Use
  Company Number: US-PFIZER INC-2016081024

PATIENT
  Sex: Female

DRUGS (1)
  1. ADVIL [Suspect]
     Active Substance: IBUPROFEN
     Dosage: UNK

REACTIONS (7)
  - Glossodynia [Unknown]
  - Burning sensation [Unknown]
  - Hypoaesthesia [Unknown]
  - Throat irritation [Unknown]
  - Palpitations [Unknown]
  - Dyspnoea [Unknown]
  - Hypoaesthesia oral [Unknown]
